FAERS Safety Report 9160993 (Version 1)
Quarter: 2013Q1

REPORT INFORMATION
  Report Type: Spontaneous
  Country: US (occurrence: None)
  Receive Date: 20130215
  Receipt Date: 20130215
  Transmission Date: 20140127
  Serious: Yes (Hospitalization)
  Sender: FDA-Public Use
  Company Number: DKLU1086283

PATIENT
  Age: 7 Month
  Sex: Female
  Weight: 7.25 kg

DRUGS (8)
  1. SABRIL (FOR ORAL SOLUTION) (SABRIL) (VIGABATRIN) (500 MG, POWDER FOR ORAL SOLUTION) [Suspect]
     Indication: INFANTILE SPASMS
     Route: 048
     Dates: start: 20121025
  2. PREVACID (LANSOPRAZOLE) [Concomitant]
  3. VITAMIN B6 (PYRIDOXINE HYDROCHLORIDE) [Concomitant]
  4. ZARONTIN (ETHOSUXIMIDE) [Concomitant]
  5. KLONOPIN (CLONAZEPAM) (TABLETS) [Concomitant]
  6. LUMINAL (PHENOBARBITAL) [Concomitant]
  7. ASPIRIN (ACETYLSALICYLIC ACID) [Concomitant]
  8. KEPPRA (LEVETIRACETAM) [Concomitant]

REACTIONS (3)
  - Electroencephalogram abnormal [None]
  - Lobar pneumonia [None]
  - Blood alkaline phosphatase increased [None]
